FAERS Safety Report 16487556 (Version 1)
Quarter: 2019Q2

REPORT INFORMATION
  Report Type: Spontaneous
  Country: US (occurrence: US)
  Receive Date: 20190627
  Receipt Date: 20190627
  Transmission Date: 20190711
  Serious: No
  Sender: FDA-Public Use
  Company Number: US-AMNEAL PHARMACEUTICALS-2018AMN00355

PATIENT
  Age: 76 Year
  Sex: Female
  Weight: 61.22 kg

DRUGS (2)
  1. COMBIGAN [Concomitant]
     Active Substance: BRIMONIDINE TARTRATE\TIMOLOL MALEATE
  2. ESTRADIOL. [Suspect]
     Active Substance: ESTRADIOL
     Indication: VAGINAL HYPOPLASIA
     Dosage: 10 MCG, 3X/WEEK
     Dates: start: 20180601, end: 20180618

REACTIONS (2)
  - Drug ineffective [Unknown]
  - Product packaging issue [Unknown]

NARRATIVE: CASE EVENT DATE: 20180611
